FAERS Safety Report 17858603 (Version 2)
Quarter: 2020Q2

REPORT INFORMATION
  Report Type: Report from Study
  Country: None (occurrence: US)
  Receive Date: 20200604
  Receipt Date: 20200605
  Transmission Date: 20200714
  Serious: No
  Sender: FDA-Public Use
  Company Number: US-US WORLDMEDS, LLC-USW202001-000072

PATIENT
  Age: 77 Year
  Sex: Female
  Weight: 52.16 kg

DRUGS (12)
  1. ASA [Concomitant]
     Active Substance: ASPIRIN
  2. LISINOPRIL. [Concomitant]
     Active Substance: LISINOPRIL
  3. CARBIDOPA-LEVODOPA [Concomitant]
     Active Substance: CARBIDOPA\LEVODOPA
     Dosage: 25/100 MG 2 TABLETS 5 TIMES DAILY
  4. APOKYN [Suspect]
     Active Substance: APOMORPHINE HYDROCHLORIDE
     Indication: PARKINSON^S DISEASE
     Route: 058
     Dates: start: 20200114
  5. DOCUSATE [Concomitant]
     Active Substance: DOCUSATE
  6. ATORVASTATIN [Concomitant]
     Active Substance: ATORVASTATIN
  7. SYNTHROID [Concomitant]
     Active Substance: LEVOTHYROXINE SODIUM
  8. TRAMADOL. [Concomitant]
     Active Substance: TRAMADOL
  9. DEXTROMETHORPHAN-QUINIDINE [Concomitant]
  10. POLYETHYLENE GLYCOL [Concomitant]
     Active Substance: POLYETHYLENE GLYCOLS
  11. BACLOFEN. [Concomitant]
     Active Substance: BACLOFEN
  12. MULTIVITAMIN [Concomitant]
     Active Substance: VITAMINS

REACTIONS (2)
  - Diarrhoea [Recovered/Resolved]
  - Somnolence [Recovered/Resolved]

NARRATIVE: CASE EVENT DATE: 20200114
